FAERS Safety Report 6258072-8 (Version None)
Quarter: 2009Q3

REPORT INFORMATION
  Report Type: 
  Country: None (occurrence: None)
  Receive Date: 20090702
  Receipt Date: 20090617
  Transmission Date: 20100115
  Serious: Yes (Death, Other)
  Sender: FDA-Public Use
  Company Number: 09-062

PATIENT
  Age: 81 Year
  Sex: Female

DRUGS (2)
  1. CEFEPIME [Suspect]
     Indication: BRONCHOPNEUMONIA
     Dosage: 2 G TWICE A DAY, IV
     Route: 042
  2. AMOXICILLIN AND CLAVULANATE POTASSIUM [Suspect]
     Indication: BRONCHOPNEUMONIA
     Dosage: 2 G 3 TIMES A DAY, IV
     Route: 042

REACTIONS (3)
  - ANTIBIOTIC LEVEL ABOVE THERAPEUTIC [None]
  - MEDICATION ERROR [None]
  - STATUS EPILEPTICUS [None]
